FAERS Safety Report 7617216-3 (Version None)
Quarter: 2011Q3

REPORT INFORMATION
  Report Type: 
  Country: None (occurrence: None)
  Receive Date: 20110718
  Receipt Date: 20110701
  Transmission Date: 20111222
  Serious: Yes (Hospitalization)
  Sender: FDA-Public Use
  Company Number: US-BAYER-2010-002229

PATIENT
  Age: 18 Year
  Sex: Female
  Weight: 58.503 kg

DRUGS (7)
  1. PROTONIX [Concomitant]
     Dosage: UNK
     Route: 042
     Dates: start: 20090125
  2. DEMEROL [Concomitant]
     Dosage: UNK
     Route: 042
     Dates: start: 20090125
  3. YASMIN [Suspect]
     Indication: PRODUCT USED FOR UNKNOWN INDICATION
     Dosage: UNK
     Dates: start: 20060101, end: 20090101
  4. YAZ [Suspect]
     Indication: PRODUCT USED FOR UNKNOWN INDICATION
     Dosage: UNK
     Dates: start: 20060101, end: 20090101
  5. DROSPIRENONE AND ETHINYL ESTRADIOL [Suspect]
     Dosage: UNK
     Dates: start: 20060101, end: 20090101
  6. ZOFRAN [Concomitant]
     Dosage: UNK
     Route: 042
     Dates: start: 20090125
  7. ACIPHEX [Concomitant]

REACTIONS (4)
  - CHOLECYSTITIS ACUTE [None]
  - GALLBLADDER DISORDER [None]
  - CHOLELITHIASIS [None]
  - CHOLECYSTITIS CHRONIC [None]
